FAERS Safety Report 8773102 (Version 1)
Quarter: 2012Q4

REPORT INFORMATION
  Report Type: 
  Country: IN (occurrence: IN)
  Receive Date: 20120907
  Receipt Date: 20120907
  Transmission Date: 20130627
  Serious: Yes (Death)
  Sender: FDA-Public Use
  Company Number: PHHY2012IN076420

PATIENT
  Age: 8 Year
  Sex: Female

DRUGS (1)
  1. NAPROXEN [Suspect]
     Indication: JUVENILE ARTHRITIS

REACTIONS (6)
  - Histiocytosis haematophagic [Fatal]
  - Pulmonary haemorrhage [Fatal]
  - Shock [Fatal]
  - Lymphadenopathy [Fatal]
  - Meningeal disorder [Fatal]
  - Irritability [Fatal]
